FAERS Safety Report 4317754-5 (Version None)
Quarter: 2004Q1

REPORT INFORMATION
  Report Type: 
  Country: None (occurrence: None)
  Receive Date: 20040315
  Receipt Date: 20031031
  Transmission Date: 20041129
  Serious: Yes (Death, Other)
  Sender: FDA-Public Use
  Company Number: JP-BRISTOL-MYERS SQUIBB COMPANY-12425518

PATIENT
  Age: 28 Year
  Sex: Male

DRUGS (7)
  1. STOCRIN CAPS [Suspect]
     Indication: ACQUIRED IMMUNODEFICIENCY SYNDROME
     Dosage: 200 MG 3 TIMES DAILY 26-JAN-2000 TO 16-FEB-2000. 600 MG DAILY 17-FEB-2000 TO 20-JUN-2002.
     Route: 048
     Dates: start: 20000126, end: 20020620
  2. ZERIT [Suspect]
     Indication: ACQUIRED IMMUNODEFICIENCY SYNDROME
     Route: 048
     Dates: start: 20000527, end: 20020620
  3. EPIVIR [Suspect]
     Indication: ACQUIRED IMMUNODEFICIENCY SYNDROME
     Route: 048
     Dates: start: 20000527, end: 20020620
  4. LEVOMEPROMAZINE MALEATE [Concomitant]
  5. LITHIUM CARBONATE [Concomitant]
  6. LORAZEPAM [Concomitant]
  7. ZOTEPINE [Concomitant]

REACTIONS (2)
  - COMPLETED SUICIDE [None]
  - OVERDOSE [None]
